FAERS Safety Report 4892521-2 (Version None)
Quarter: 2006Q1

REPORT INFORMATION
  Report Type: 
  Country: None (occurrence: None)
  Receive Date: 20060125
  Receipt Date: 20060125
  Transmission Date: 20060701
  Serious: Yes (Hospitalization)
  Sender: FDA-Public Use
  Company Number: None

PATIENT
  Sex: Female
  Weight: 70.4 kg

DRUGS (2)
  1. LEVOFLOXACIN [Suspect]
     Indication: URINARY TRACT INFECTION
     Dosage: 250MG  PO  DAILY
     Route: 048
     Dates: start: 20050725, end: 20050727
  2. WARFARIN   5MG [Suspect]
     Indication: ATRIAL FIBRILLATION
     Dosage: 5MG  PO  QHS
     Route: 048
     Dates: start: 20050628, end: 20050727

REACTIONS (3)
  - ESCHERICHIA URINARY TRACT INFECTION [None]
  - INTERNATIONAL NORMALISED RATIO INCREASED [None]
  - POST PROCEDURAL HAEMORRHAGE [None]
